FAERS Safety Report 7687201-4 (Version None)
Quarter: 2011Q3

REPORT INFORMATION
  Report Type: 
  Country: None (occurrence: None)
  Receive Date: 20110816
  Receipt Date: 20110808
  Transmission Date: 20111222
  Serious: Yes (Other)
  Sender: FDA-Public Use
  Company Number: DE-CEPHALON-2011004267

PATIENT
  Sex: Male

DRUGS (2)
  1. RITUXIMAB [Suspect]
     Indication: MULTIPLE MYELOMA
  2. BENDAMUSTINE HCL [Suspect]
     Indication: MULTIPLE MYELOMA
     Route: 042

REACTIONS (1)
  - DISEASE PROGRESSION [None]
